FAERS Safety Report 9473806 (Version 1)
Quarter: 2013Q3

REPORT INFORMATION
  Report Type: Spontaneous
  Country: US (occurrence: US)
  Receive Date: 20130823
  Receipt Date: 20130823
  Transmission Date: 20140515
  Serious: No
  Sender: FDA-Public Use
  Company Number: US-BRISTOL-MYERS SQUIBB COMPANY-17002932

PATIENT
  Age: 72 Year
  Sex: Female
  Weight: 54.42 kg

DRUGS (7)
  1. SPRYCEL [Suspect]
     Indication: CHRONIC MYELOID LEUKAEMIA
     Dates: start: 20120914
  2. PROBIOTICA [Concomitant]
     Dosage: PROBIOTICS
  3. ASTELIN [Concomitant]
     Dosage: NASAL SPRAYS
  4. FLONASE [Concomitant]
     Dosage: NASAL SPRAYS
  5. PREDNISONE [Concomitant]
     Dosage: 40MG IN JUNE,20 MG IN JULY,10 MG IN AUGUST AND 5 MG IN SEPTEMBE 12
  6. CELEBREX [Concomitant]
  7. INDOMETHACIN [Concomitant]

REACTIONS (4)
  - Cellulitis [Not Recovered/Not Resolved]
  - Diarrhoea [Unknown]
  - Nausea [Unknown]
  - Platelet count decreased [Unknown]
